FAERS Safety Report 23196813 (Version 2)
Quarter: 2023Q4

REPORT INFORMATION
  Report Type: Spontaneous
  Country: RU (occurrence: None)
  Receive Date: 20231117
  Receipt Date: 20231201
  Transmission Date: 20240109
  Serious: Yes (Other)
  Sender: FDA-Public Use
  Company Number: 2023A256914

PATIENT
  Age: 32 Year
  Sex: Male

DRUGS (5)
  1. NEXIUM [Suspect]
     Active Substance: ESOMEPRAZOLE MAGNESIUM
     Indication: Gastritis
     Route: 048
  2. NEXIUM [Suspect]
     Active Substance: ESOMEPRAZOLE MAGNESIUM
     Indication: Gastritis
     Route: 048
  3. MEBEVERINE [Concomitant]
     Active Substance: MEBEVERINE
  4. PLATYPHYLLINE [Concomitant]
  5. URSODIOL [Concomitant]
     Active Substance: URSODIOL

REACTIONS (2)
  - Cholelithiasis [Recovered/Resolved]
  - Off label use [Unknown]
